FAERS Safety Report 13422544 (Version 2)
Quarter: 2017Q2

REPORT INFORMATION
  Report Type: Spontaneous
  Country: US (occurrence: US)
  Receive Date: 20170410
  Receipt Date: 20170508
  Transmission Date: 20170830
  Serious: Yes (Hospitalization)
  Sender: FDA-Public Use
  Company Number: US-GLAXOSMITHKLINE-US2017048265

PATIENT
  Age: 51 Year
  Sex: Female

DRUGS (1)
  1. NUCALA [Suspect]
     Active Substance: MEPOLIZUMAB
     Indication: ASPIRIN-EXACERBATED RESPIRATORY DISEASE
     Dosage: 100 MG, UNK
     Route: 042
     Dates: start: 201610

REACTIONS (12)
  - Influenza [Unknown]
  - Pruritus [Not Recovered/Not Resolved]
  - Dizziness [Not Recovered/Not Resolved]
  - Viral infection [Unknown]
  - Throat irritation [Not Recovered/Not Resolved]
  - Abdominal distension [Unknown]
  - Nausea [Not Recovered/Not Resolved]
  - Headache [Not Recovered/Not Resolved]
  - Pyrexia [Recovered/Resolved]
  - Flushing [Recovered/Resolved]
  - Fatigue [Not Recovered/Not Resolved]
  - Abdominal pain [Not Recovered/Not Resolved]

NARRATIVE: CASE EVENT DATE: 201701
